FAERS Safety Report 20435185 (Version 1)
Quarter: 2022Q1

REPORT INFORMATION
  Report Type: Spontaneous
  Country: PL (occurrence: PL)
  Receive Date: 20220206
  Receipt Date: 20220206
  Transmission Date: 20220423
  Serious: Yes (Other)
  Sender: FDA-Public Use
  Company Number: PL-JNJFOC-20220153365

PATIENT

DRUGS (1)
  1. VELETRI [Suspect]
     Active Substance: EPOPROSTENOL
     Indication: Product used for unknown indication
     Route: 042

REACTIONS (3)
  - Syncope [Unknown]
  - Device physical property issue [Unknown]
  - Product administration interrupted [Unknown]
